FAERS Safety Report 8347664-8 (Version None)
Quarter: 2012Q2

REPORT INFORMATION
  Report Type: 
  Country: None (occurrence: None)
  Receive Date: 20120509
  Receipt Date: 20120503
  Transmission Date: 20120825
  Serious: Yes (Disabling, Other)
  Sender: FDA-Public Use
  Company Number: US-MERCK-1011USA01578

PATIENT
  Age: 61 Year
  Sex: Female
  Weight: 55 kg

DRUGS (6)
  1. FOSAMAX [Suspect]
     Indication: OSTEOPOROSIS
     Route: 048
     Dates: start: 20021001, end: 20100301
  2. FOSAMAX [Suspect]
     Route: 048
  3. ACTONEL [Suspect]
     Indication: OSTEOPENIA
     Route: 065
     Dates: start: 20020401, end: 20021001
  4. CALCIUM (UNSPECIFIED) AND VITAMIN D (UNSPECIFIED) [Concomitant]
     Route: 065
     Dates: start: 19900101
  5. FOSAMAX [Suspect]
     Route: 048
  6. FOSAMAX [Suspect]
     Indication: OSTEOPENIA
     Route: 048
     Dates: start: 20021001, end: 20100301

REACTIONS (24)
  - OSTEOPOROSIS [None]
  - BLOOD DISORDER [None]
  - SPIDER VEIN [None]
  - BONE LOSS [None]
  - FEMUR FRACTURE [None]
  - ARTHRITIS [None]
  - GINGIVAL RECESSION [None]
  - ECZEMA [None]
  - STRESS FRACTURE [None]
  - RECTAL POLYP [None]
  - PERIODONTAL DISEASE [None]
  - TREATMENT NONCOMPLIANCE [None]
  - JOINT SWELLING [None]
  - PERIODONTITIS [None]
  - MALOCCLUSION [None]
  - DEEP VEIN THROMBOSIS [None]
  - ATROPHIC VULVOVAGINITIS [None]
  - FALL [None]
  - DENTAL CARIES [None]
  - CONNECTIVE TISSUE DISORDER [None]
  - BONE DISORDER [None]
  - GASTROOESOPHAGEAL REFLUX DISEASE [None]
  - LOW TURNOVER OSTEOPATHY [None]
  - TRAUMATIC OCCLUSION [None]
